FAERS Safety Report 8875696 (Version 1)
Quarter: 2012Q4

REPORT INFORMATION
  Report Type: Report from Study
  Country: FR (occurrence: FR)
  Receive Date: 20121030
  Receipt Date: 20121030
  Transmission Date: 20130627
  Serious: Yes (Disabling)
  Sender: FDA-Public Use
  Company Number: FR-GLAXOSMITHKLINE-B0840694A

PATIENT
  Sex: Male
  Weight: 75 kg

DRUGS (2)
  1. OFATUMUMAB [Suspect]
     Indication: LYMPHOMA
     Dates: start: 20110426, end: 20110810
  2. CHOP [Concomitant]
     Indication: CHEMOTHERAPY
     Dates: start: 20110426, end: 20110810

REACTIONS (1)
  - Ulcerative keratitis [Not Recovered/Not Resolved]
